FAERS Safety Report 12355087 (Version 1)
Quarter: 2016Q2

REPORT INFORMATION
  Report Type: Spontaneous
  Country: FR (occurrence: FR)
  Receive Date: 20160511
  Receipt Date: 20160511
  Transmission Date: 20160815
  Serious: Yes (Death)
  Sender: FDA-Public Use
  Company Number: FR-PFIZER INC-2016251942

PATIENT
  Age: 86 Year
  Sex: Female

DRUGS (6)
  1. ACETYLSALICYLATE LYSINE [Concomitant]
     Active Substance: ASPIRIN DL-LYSINE
     Dosage: UNK
  2. KARDEGIC [Concomitant]
     Active Substance: ASPIRIN LYSINE
     Dosage: UNK
  3. SERESTA [Interacting]
     Active Substance: OXAZEPAM
     Dosage: UNK
     Route: 048
     Dates: start: 20160101, end: 20160410
  4. RISPERDAL [Interacting]
     Active Substance: RISPERIDONE
     Indication: RESTLESSNESS
     Dosage: 1 DF, 3X/DAY
     Route: 048
     Dates: start: 20160409, end: 20160410
  5. CORDARONE [Suspect]
     Active Substance: AMIODARONE HYDROCHLORIDE
     Indication: ATRIAL FIBRILLATION
     Dosage: 1 DF, DAILY
     Route: 048
     Dates: start: 201601, end: 20160410
  6. FENOFIBRATE. [Concomitant]
     Active Substance: FENOFIBRATE
     Dosage: UNK

REACTIONS (2)
  - Drug interaction [Fatal]
  - Sudden death [Fatal]

NARRATIVE: CASE EVENT DATE: 20160410
